FAERS Safety Report 6997366-5 (Version None)
Quarter: 2010Q3

REPORT INFORMATION
  Report Type: 
  Country: None (occurrence: None)
  Receive Date: 20100918
  Receipt Date: 20091006
  Transmission Date: 20110219
  Serious: No
  Sender: FDA-Public Use
  Company Number: US-WYE-H11484109

PATIENT
  Age: 62 Year
  Sex: Female
  Weight: 82.63 kg

DRUGS (6)
  1. PRISTIQ [Suspect]
     Indication: DEPRESSION
     Route: 048
     Dates: start: 20090924
  2. ACETAZOLAMIDE [Concomitant]
  3. LISINOPRIL [Concomitant]
  4. PHENOBARBITAL [Concomitant]
  5. WARFARIN SODIUM [Concomitant]
  6. METOPROLOL [Concomitant]

REACTIONS (1)
  - FEELING HOT [None]
